FAERS Safety Report 9031694 (Version 1)
Quarter: 2013Q1

REPORT INFORMATION
  Report Type: Spontaneous
  Country: GB (occurrence: GB)
  Receive Date: 20130124
  Receipt Date: 20130124
  Transmission Date: 20140127
  Serious: Yes (Other)
  Sender: FDA-Public Use
  Company Number: GB-PFIZER INC-2010015914

PATIENT
  Age: 41 Year
  Sex: Female

DRUGS (4)
  1. PARACETAMOL [Suspect]
     Dosage: UNK
     Dates: start: 20011011
  2. IBUPROFEN [Suspect]
     Dosage: 7 DF, UNK
     Dates: start: 20011011
  3. SEROXAT [Suspect]
     Dosage: UNK MG, 1X/DAY
     Dates: start: 20011011
  4. FLUOXETINE [Concomitant]
     Dosage: 40 MG, UNK

REACTIONS (3)
  - Suicide attempt [Unknown]
  - Drug withdrawal syndrome [Unknown]
  - Intentional overdose [Unknown]
